FAERS Safety Report 6839297-7 (Version None)
Quarter: 2010Q3

REPORT INFORMATION
  Report Type: 
  Country: None (occurrence: None)
  Receive Date: 20100714
  Receipt Date: 20100629
  Transmission Date: 20110219
  Serious: Yes (Other)
  Sender: FDA-Public Use
  Company Number: PHHY2010ES43320

PATIENT
  Age: 64 Year
  Sex: Female

DRUGS (2)
  1. DEFERASIROX [Suspect]
     Indication: IRON OVERLOAD
     Dosage: 1250 MG PER DAY
  2. BLOOD TRANSFUSION, AUXILIARY PRODUCTS [Concomitant]

REACTIONS (11)
  - LIVER FUNCTION TEST ABNORMAL [None]
  - NAUSEA [None]
  - PYREXIA [None]
  - RASH [None]
  - RASH MACULO-PAPULAR [None]
  - RASH PRURITIC [None]
  - RENAL FAILURE [None]
  - SKIN LESION [None]
  - THROMBOCYTOPENIA [None]
  - TYPE IV HYPERSENSITIVITY REACTION [None]
  - VOMITING [None]
